FAERS Safety Report 11826391 (Version 1)
Quarter: 2015Q4

REPORT INFORMATION
  Report Type: Spontaneous
  Country: US (occurrence: None)
  Receive Date: 20151210
  Receipt Date: 20151210
  Transmission Date: 20160305
  Serious: No
  Sender: FDA-Public Use
  Company Number: None

PATIENT
  Age: 82 Year
  Sex: Female

DRUGS (1)
  1. LEUKERAN [Suspect]
     Active Substance: CHLORAMBUCIL
     Indication: CHRONIC LEUKAEMIA
     Dosage: 9  TABS QD X 5 DAYS
     Route: 048
     Dates: start: 20150513, end: 20151209

REACTIONS (2)
  - Rash pruritic [None]
  - Therapy cessation [None]

NARRATIVE: CASE EVENT DATE: 201512
